APPROVED DRUG PRODUCT: CALCIUM CHLORIDE 10%
Active Ingredient: CALCIUM CHLORIDE
Strength: 100MG/ML
Dosage Form/Route: INJECTABLE;INJECTION
Application: A211553 | Product #001 | TE Code: AP
Applicant: MEDEFIL INC
Approved: May 1, 2019 | RLD: No | RS: No | Type: RX